FAERS Safety Report 9025651 (Version 1)
Quarter: 2013Q1

REPORT INFORMATION
  Report Type: Spontaneous
  Country: CH (occurrence: CH)
  Receive Date: 20130123
  Receipt Date: 20130123
  Transmission Date: 20140127
  Serious: Yes (Hospitalization, Other)
  Sender: FDA-Public Use
  Company Number: CH-009507513-1301CHE008619

PATIENT
  Age: 71 Year
  Sex: Female

DRUGS (5)
  1. REMERON [Suspect]
     Dosage: 1.5 G, ONCE
     Route: 048
     Dates: start: 20120927, end: 20120927
  2. AMISULPRIDE [Suspect]
     Dosage: 8 G, ONCE
     Route: 048
     Dates: start: 20120927, end: 20120927
  3. PREGABALIN [Suspect]
     Dosage: 3.2 G, ONCE
     Route: 048
     Dates: start: 20120927, end: 20120927
  4. CLORAZEPATE DIPOTASSIUM [Suspect]
     Dosage: UNK
     Route: 048
     Dates: start: 20120927, end: 20120927
  5. ZOLPIDEM TARTRATE [Suspect]
     Dosage: UNK
     Route: 048
     Dates: start: 20120927, end: 20120927

REACTIONS (3)
  - Coma [Recovered/Resolved]
  - Suicide attempt [Recovered/Resolved]
  - Electrocardiogram QT prolonged [Recovered/Resolved]
